FAERS Safety Report 8867925 (Version 1)
Quarter: 2012Q4

REPORT INFORMATION
  Report Type: 
  Country: US (occurrence: US)
  Receive Date: 20121026
  Receipt Date: 20121026
  Transmission Date: 20130627
  Serious: No
  Sender: FDA-Public Use
  Company Number: US-AMGEN-USASP2012040763

PATIENT
  Sex: Female

DRUGS (4)
  1. ENBREL [Suspect]
     Indication: RHEUMATOID ARTHRITIS
     Dosage: 50 mg, qwk
     Route: 058
     Dates: start: 20120531
  2. SYNTHROID [Concomitant]
     Dosage: UNK
  3. CYMBALTA [Concomitant]
     Dosage: UNK
  4. NEURONTIN [Concomitant]
     Dosage: UNK

REACTIONS (2)
  - Tongue ulceration [Not Recovered/Not Resolved]
  - Vulvovaginal pain [Not Recovered/Not Resolved]
